FAERS Safety Report 13987949 (Version 5)
Quarter: 2017Q4

REPORT INFORMATION
  Report Type: Report from Study
  Country: CR (occurrence: CR)
  Receive Date: 20170919
  Receipt Date: 20171218
  Transmission Date: 20180321
  Serious: Yes (Other)
  Sender: FDA-Public Use
  Company Number: PHHY2017CR079583

PATIENT
  Age: 39 Year
  Sex: Male

DRUGS (4)
  1. METFORMIN [Concomitant]
     Active Substance: METFORMIN HYDROCHLORIDE
     Indication: PRODUCT USED FOR UNKNOWN INDICATION
     Route: 065
  2. LORATADINE. [Concomitant]
     Active Substance: LORATADINE
     Indication: PRODUCT USED FOR UNKNOWN INDICATION
     Route: 065
  3. SANDOSTATIN LAR DEPOT [Suspect]
     Active Substance: OCTREOTIDE ACETATE
     Indication: ACROMEGALY
     Dosage: 20 MG, QMO
     Route: 030
  4. IRBESARTAN. [Suspect]
     Active Substance: IRBESARTAN
     Indication: PRODUCT USED FOR UNKNOWN INDICATION
     Route: 065

REACTIONS (24)
  - Nasal congestion [Unknown]
  - Apnoea [Unknown]
  - Chondromalacia [Unknown]
  - Arthralgia [Unknown]
  - Somnolence [Unknown]
  - Limb injury [Unknown]
  - Memory impairment [Unknown]
  - Pain [Unknown]
  - Multiple sclerosis [Unknown]
  - Arthropathy [Unknown]
  - Vision blurred [Unknown]
  - Ligament disorder [Unknown]
  - Dysstasia [Unknown]
  - Drug ineffective [Unknown]
  - Neoplasm [Unknown]
  - Fall [Unknown]
  - Bone pain [Unknown]
  - Asphyxia [Unknown]
  - Gait inability [Unknown]
  - Sleep apnoea syndrome [Not Recovered/Not Resolved]
  - Hyperhidrosis [Unknown]
  - Malaise [Unknown]
  - Fear [Unknown]
  - Asthenia [Unknown]
